FAERS Safety Report 5610693-9 (Version None)
Quarter: 2008Q1

REPORT INFORMATION
  Report Type: 
  Country: None (occurrence: None)
  Receive Date: 20080130
  Receipt Date: 20080130
  Transmission Date: 20080703
  Serious: Yes (Death)
  Sender: FDA-Public Use
  Company Number: None

PATIENT
  Sex: Male
  Weight: 41 kg

DRUGS (1)
  1. CLOFAR, CLOFARABINE INJ   20 ML/20 MG   GENZYME -4- [Suspect]
     Indication: ACUTE LYMPHOCYTIC LEUKAEMIA
     Dosage: 50 MG  QD -5 DAYS PLANNED  IV DRIP
     Route: 041
     Dates: start: 20080106, end: 20080109

REACTIONS (12)
  - BLOOD CREATININE INCREASED [None]
  - CAPILLARY LEAK SYNDROME [None]
  - CARDIAC ARREST [None]
  - CARDIAC DISORDER [None]
  - CONTINUOUS HAEMODIAFILTRATION [None]
  - HYPOTENSION [None]
  - OEDEMA PERIPHERAL [None]
  - OLIGURIA [None]
  - RESPIRATORY DISTRESS [None]
  - RESPIRATORY FAILURE [None]
  - SWELLING FACE [None]
  - SYSTEMIC INFLAMMATORY RESPONSE SYNDROME [None]
